FAERS Safety Report 9419615 (Version 1)
Quarter: 2013Q3

REPORT INFORMATION
  Report Type: Spontaneous
  Country: AU (occurrence: AU)
  Receive Date: 20130725
  Receipt Date: 20130725
  Transmission Date: 20140515
  Serious: Yes (Hospitalization)
  Sender: FDA-Public Use
  Company Number: AU-009507513-1307AUS007850

PATIENT
  Age: 20 Month
  Sex: Male
  Weight: 13.4 kg

DRUGS (3)
  1. CLARATYNE [Suspect]
     Indication: URTICARIA
     Dosage: 2 ML, UNK
     Route: 048
     Dates: start: 20080720, end: 20080720
  2. PHENERGAN (PROMETHAZINE HYDROCHLORIDE) [Suspect]
     Indication: URTICARIA
     Dosage: 0.3-0.4MG/KG
     Route: 048
     Dates: start: 20080720, end: 20080720
  3. PREDNISONE [Suspect]
     Dosage: UNK
     Route: 048
     Dates: start: 20080720, end: 20080720

REACTIONS (3)
  - Accidental exposure to product by child [Unknown]
  - Accidental overdose [Unknown]
  - Medication error [Unknown]
